FAERS Safety Report 7598021-3 (Version None)
Quarter: 2011Q3

REPORT INFORMATION
  Report Type: 
  Country: None (occurrence: None)
  Receive Date: 20110708
  Receipt Date: 20110701
  Transmission Date: 20111222
  Serious: Yes (Death, Hospitalization)
  Sender: FDA-Public Use
  Company Number: NP-ABBOTT-11P-113-0835955-00

PATIENT
  Age: 25 Year
  Sex: Male

DRUGS (4)
  1. VALPROIC ACID [Suspect]
     Route: 048
  2. VALPROIC ACID [Suspect]
     Route: 048
     Dates: end: 20110625
  3. VALPROIC ACID [Suspect]
     Indication: CONVULSION
     Route: 048
     Dates: start: 20100806
  4. CLONAZEPAM [Concomitant]
     Indication: PRODUCT USED FOR UNKNOWN INDICATION
     Dates: start: 20100806, end: 20110625

REACTIONS (7)
  - HYPOXIC-ISCHAEMIC ENCEPHALOPATHY [None]
  - DISCOMFORT [None]
  - CONVULSION [None]
  - SOMNOLENCE [None]
  - VOMITING [None]
  - DRUG INEFFECTIVE [None]
  - PNEUMONIA ASPIRATION [None]
